FAERS Safety Report 4766452-2 (Version None)
Quarter: 2005Q3

REPORT INFORMATION
  Report Type: 
  Country: None (occurrence: None)
  Receive Date: 20050912
  Receipt Date: 20050812
  Transmission Date: 20060218
  Serious: Yes (Life-Threatening, Hospitalization)
  Sender: FDA-Public Use
  Company Number: AU-ROCHE-414377

PATIENT
  Age: 50 Year
  Sex: Female
  Weight: 70 kg

DRUGS (3)
  1. XELODA [Suspect]
     Dosage: FOR 14 DAYS FOLLOWED BY 7 DAYS REST. CYCLE I.
     Route: 048
     Dates: start: 20050503
  2. XELODA [Suspect]
     Dosage: FOR 14 DAYS TREATMENT FOLLOWED BY 7 DAYS REST. CYCLES II AND III.
     Route: 048
  3. XELODA [Suspect]
     Dosage: FOR 14 DAYS TREATMENT FOLLOWED BY 7 DAYS REST.
     Route: 048

REACTIONS (3)
  - INTESTINAL OBSTRUCTION [None]
  - PALMAR-PLANTAR ERYTHRODYSAESTHESIA SYNDROME [None]
  - RASH [None]
